FAERS Safety Report 10890612 (Version 2)
Quarter: 2015Q1

REPORT INFORMATION
  Report Type: Spontaneous
  Country: GR (occurrence: GR)
  Receive Date: 20150305
  Receipt Date: 20150326
  Transmission Date: 20150721
  Serious: Yes (Death, Hospitalization)
  Sender: FDA-Public Use
  Company Number: GR-SA-2015SA027432

PATIENT
  Sex: Male

DRUGS (2)
  1. OTHER CHEMOTHERAPEUTICS [Concomitant]
     Active Substance: UNSPECIFIED INGREDIENT
     Indication: COLORECTAL CANCER METASTATIC
     Dates: start: 20150303, end: 20150303
  2. ZALTRAP [Suspect]
     Active Substance: ZIV-AFLIBERCEPT
     Indication: COLORECTAL CANCER METASTATIC
     Route: 065
     Dates: start: 20150303, end: 20150303

REACTIONS (2)
  - Rectal haemorrhage [Fatal]
  - Abdominal pain [Fatal]

NARRATIVE: CASE EVENT DATE: 201503
